FAERS Safety Report 10161792 (Version 1)
Quarter: 2014Q2

REPORT INFORMATION
  Report Type: Spontaneous
  Country: JP (occurrence: None)
  Receive Date: 20140507
  Receipt Date: 20140507
  Transmission Date: 20141212
  Serious: Yes (Other)
  Sender: FDA-Public Use
  Company Number: ABR_01616_2014

PATIENT
  Sex: Male
  Weight: 1 kg

DRUGS (3)
  1. ERYTHROMYCIN STEARATE [Suspect]
     Indication: FOETAL EXPOSURE DURING PREGNANCY
     Route: 064
     Dates: start: 19990222, end: 19990224
  2. RITODRINE HYDROCHLORIDE [Concomitant]
  3. AMPICILLIN [Concomitant]

REACTIONS (4)
  - Developmental delay [None]
  - Attention deficit/hyperactivity disorder [None]
  - Premature baby [None]
  - Maternal drugs affecting foetus [None]
